FAERS Safety Report 13032857 (Version 1)
Quarter: 2016Q4

REPORT INFORMATION
  Report Type: Spontaneous
  Country: US (occurrence: US)
  Receive Date: 20161215
  Receipt Date: 20161215
  Transmission Date: 20170207
  Serious: Yes (Death)
  Sender: FDA-Public Use
  Company Number: US-UNITED THERAPEUTICS-UNT-2016-018832

PATIENT
  Sex: Female

DRUGS (1)
  1. REMODULIN [Suspect]
     Active Substance: TREPROSTINIL
     Indication: PULMONARY ARTERIAL HYPERTENSION
     Dosage: 0.09 ?G/KG, EVERY 48 HOURS
     Route: 041
     Dates: start: 201510, end: 20161203

REACTIONS (1)
  - Hypoxia [Fatal]

NARRATIVE: CASE EVENT DATE: 20161203
